FAERS Safety Report 6823608-2 (Version None)
Quarter: 2010Q3

REPORT INFORMATION
  Report Type: 
  Country: None (occurrence: None)
  Receive Date: 20100708
  Receipt Date: 20060810
  Transmission Date: 20110219
  Serious: No
  Sender: FDA-Public Use
  Company Number: US-PFIZER INC-2006099086

PATIENT
  Age: 37 Year
  Sex: Female

DRUGS (1)
  1. CHANTIX [Suspect]
     Indication: EX-TOBACCO USER
     Route: 065
     Dates: start: 20060723

REACTIONS (1)
  - MENSTRUATION IRREGULAR [None]
